FAERS Safety Report 10752951 (Version 2)
Quarter: 2015Q1

REPORT INFORMATION
  Report Type: Spontaneous
  Country: US (occurrence: US)
  Receive Date: 20150130
  Receipt Date: 20150311
  Transmission Date: 20150721
  Serious: No
  Sender: FDA-Public Use
  Company Number: US-ARIAD PHARMACEUTICALS, INC-2015US004474

PATIENT

DRUGS (1)
  1. ICLUSIG [Suspect]
     Active Substance: PONATINIB
     Indication: CHRONIC MYELOID LEUKAEMIA
     Dosage: 30 MG, QD
     Route: 048

REACTIONS (9)
  - Anaemia [Not Recovered/Not Resolved]
  - Hyperbilirubinaemia [Unknown]
  - Hypertension [Not Recovered/Not Resolved]
  - Chest pain [Unknown]
  - Hypothyroidism [Not Recovered/Not Resolved]
  - Fatigue [Unknown]
  - Hyperphosphataemia [Unknown]
  - Malaria [Unknown]
  - Blood uric acid increased [Unknown]

NARRATIVE: CASE EVENT DATE: 20140828
